FAERS Safety Report 19282588 (Version 1)
Quarter: 2021Q2

REPORT INFORMATION
  Report Type: Spontaneous
  Country: US (occurrence: US)
  Receive Date: 20210521
  Receipt Date: 20210521
  Transmission Date: 20210717
  Serious: Yes (Other)
  Sender: FDA-Public Use
  Company Number: US-SA-2021SA161417

PATIENT
  Age: 71 Year
  Sex: Female

DRUGS (3)
  1. CEFTAZIDIME. [Concomitant]
     Active Substance: CEFTAZIDIME
     Dosage: UNK
     Route: 057
  2. TRIAMCINOLONE ACETONIDE. [Suspect]
     Active Substance: TRIAMCINOLONE ACETONIDE
     Dosage: 40 MG/ML (0.3 ML)
     Route: 057
  3. TRIAMCINOLONE ACETONIDE. [Suspect]
     Active Substance: TRIAMCINOLONE ACETONIDE
     Indication: CONJUNCTIVAL STAINING
     Dosage: 0.1 ML(DILUTED)
     Route: 057

REACTIONS (15)
  - Papilloedema [Recovered/Resolved]
  - Condition aggravated [Recovered/Resolved]
  - Optic atrophy [Recovered/Resolved]
  - Macular degeneration [Recovered/Resolved]
  - Retinal perivascular sheathing [Recovered/Resolved]
  - Visual field defect [Recovered/Resolved]
  - Retinal vasculitis [Recovered/Resolved]
  - Retinal haemorrhage [Recovered/Resolved]
  - Optic disc haemorrhage [Recovered/Resolved]
  - Macular cyst [Recovered/Resolved]
  - Cytomegalovirus chorioretinitis [Recovered/Resolved]
  - Optic neuritis [Recovered/Resolved]
  - Vitreous floaters [Recovered/Resolved]
  - Corneal lesion [Recovered/Resolved]
  - Macular fibrosis [Recovered/Resolved]
